FAERS Safety Report 14114204 (Version 1)
Quarter: 2017Q4

REPORT INFORMATION
  Report Type: Spontaneous
  Country: TR (occurrence: TR)
  Receive Date: 20171023
  Receipt Date: 20171023
  Transmission Date: 20180321
  Serious: Yes (Other)
  Sender: FDA-Public Use
  Company Number: TR-AXELLIA-001183

PATIENT
  Age: 9 Year
  Sex: Female

DRUGS (3)
  1. VANCOMYCIN [Suspect]
     Active Substance: VANCOMYCIN
     Indication: CYSTITIS
  2. AMIKACIN [Suspect]
     Active Substance: AMIKACIN
     Indication: CYSTITIS
  3. CICLOSPORIN [Suspect]
     Active Substance: CYCLOSPORINE
     Indication: CYSTITIS

REACTIONS (1)
  - Renal disorder [Unknown]
